FAERS Safety Report 15552110 (Version 1)
Quarter: 2018Q4

REPORT INFORMATION
  Report Type: Report from Study
  Country: CA (occurrence: CA)
  Receive Date: 20181025
  Receipt Date: 20181025
  Transmission Date: 20190205
  Serious: Yes (Other)
  Sender: FDA-Public Use
  Company Number: CA-MYLANLABS-2018M1079696

PATIENT
  Age: 43 Year
  Sex: Female

DRUGS (7)
  1. ESTROGEL [Suspect]
     Active Substance: ESTRADIOL
     Indication: HORMONE REPLACEMENT THERAPY
     Dosage: 2 PUMP EACH ARM, QD
     Route: 062
     Dates: start: 20160707, end: 20161010
  2. ESTROGEL [Suspect]
     Active Substance: ESTRADIOL
     Dosage: 1-2 PUMP EACH ARM, QD
     Route: 062
  3. ESTROGEL [Suspect]
     Active Substance: ESTRADIOL
     Dosage: 2-6 PUMP EACH ARM, QD
     Route: 062
     Dates: start: 20161010, end: 20170321
  4. ESTROGEL [Suspect]
     Active Substance: ESTRADIOL
     Dosage: 1-2 PUMP EACH ARM, QD
     Dates: start: 20170322
  5. ESTROGEL [Suspect]
     Active Substance: ESTRADIOL
     Dosage: 2-4 PUMP EACH ARM, QD
     Dates: start: 2017
  6. ESTROGEL [Suspect]
     Active Substance: ESTRADIOL
     Indication: PREMATURE MENOPAUSE
     Dosage: ONE PUMP EACH ARM, QD
     Route: 062
     Dates: start: 20141010, end: 20160707
  7. ESTROGEL [Suspect]
     Active Substance: ESTRADIOL
     Dosage: 2 PUMP EACH ARM, QD

REACTIONS (11)
  - Mental disorder [Unknown]
  - Drug ineffective [Unknown]
  - Product administered at inappropriate site [Recovered/Resolved]
  - Device issue [Unknown]
  - Hyperhidrosis [Unknown]
  - Suicide attempt [Unknown]
  - Intentional overdose [Unknown]
  - Intentional product use issue [Unknown]
  - Product storage error [Unknown]
  - Hot flush [Unknown]
  - Product use issue [Unknown]

NARRATIVE: CASE EVENT DATE: 2016
